FAERS Safety Report 5726837-4 (Version None)
Quarter: 2008Q2

REPORT INFORMATION
  Report Type: 
  Country: None (occurrence: None)
  Receive Date: 20080502
  Receipt Date: 20080421
  Transmission Date: 20081010
  Serious: Yes (Congenital Anomaly)
  Sender: FDA-Public Use
  Company Number: ES-PFIZER INC-2008034999

PATIENT
  Age: 37 Year
  Sex: Female

DRUGS (2)
  1. LYRICA [Suspect]
     Indication: FIBROMYALGIA
     Route: 048
     Dates: start: 20060203, end: 20070718
  2. LORMETAZEPAM [Suspect]
     Indication: INSOMNIA
     Dosage: DAILY DOSE:2MG
     Route: 048
     Dates: start: 20060203, end: 20070718

REACTIONS (1)
  - HYPOSPADIAS [None]
